FAERS Safety Report 8009437-5 (Version None)
Quarter: 2011Q4

REPORT INFORMATION
  Report Type: 
  Country: None (occurrence: None)
  Receive Date: 20111227
  Receipt Date: 20111220
  Transmission Date: 20120403
  Serious: Yes (Hospitalization, Disabling, Other)
  Sender: FDA-Public Use
  Company Number: IT-ROCHE-729635

PATIENT
  Sex: Female
  Weight: 46 kg

DRUGS (40)
  1. MIRCERA [Suspect]
     Dosage: LAST DOSE PRIOR TO SAE:15 NOVEMBER 2010, DOSAGE FORM: PFS
     Route: 042
  2. MIRCERA [Suspect]
     Dosage: LAST DOSE PRIOR TO SAE: 15 AUG 2011
     Route: 042
  3. LANSOPRAZOLE [Concomitant]
  4. DIGOXIN [Concomitant]
     Dosage: TDD: 625 GU
     Dates: start: 20100702, end: 20101124
  5. VYTORIN [Concomitant]
     Dosage: 10/20 MG DAILY
     Dates: start: 20111116
  6. MIRCERA [Suspect]
     Indication: NEPHROGENIC ANAEMIA
     Dosage: LAST DOSE PRIOR TO SAE: 16 JUNE 2010, DOSAGE FORM: PFS
     Route: 042
  7. FUROSEMIDE [Concomitant]
  8. VERAPAMIL [Concomitant]
  9. CARVEDILOL [Concomitant]
  10. ASPIRIN [Concomitant]
     Dates: start: 20091226
  11. RISEDRONIC ACID [Concomitant]
  12. PARICALCITOL [Concomitant]
     Dosage: REPORTED AS PARACALCITOL
  13. SEVELAMER CARBONATE [Concomitant]
  14. SIMVASTATIN [Concomitant]
     Dosage: 10/20 MG
     Dates: start: 20111116
  15. ATORVASTATIN CALCIUM [Concomitant]
  16. DARBEPOETIN ALFA [Suspect]
     Indication: NEPHROGENIC ANAEMIA
     Dosage: NURSE MISTAKE ON 15 DEC 2010, DARBEPOTIN ALFA (BATCH 1016812) WAS ADMINISTERED.
     Route: 065
     Dates: start: 20101215, end: 20101215
  17. SEVELAMER [Concomitant]
  18. TELMISARTAN [Concomitant]
  19. TELMISARTAN [Concomitant]
  20. AMLODIPINE [Concomitant]
  21. ALLOPURINOL [Concomitant]
  22. IMATINIB MESYLATE [Concomitant]
     Dates: start: 20110113
  23. TICLOPIDINE HCL [Concomitant]
     Dates: start: 20111031
  24. MIRCERA [Suspect]
     Route: 042
  25. ASPIRIN [Concomitant]
  26. METOPROLOL SUCCINATE [Concomitant]
  27. LANTHANUM CARBONATE [Concomitant]
  28. CLOPIDOGREL [Concomitant]
  29. SEVELAMER [Concomitant]
  30. IRON GLUCONATE [Concomitant]
  31. PRAVASTATIN [Concomitant]
  32. ACETAMINOPHEN [Concomitant]
  33. DALTEPARIN SODIUM [Concomitant]
     Dates: start: 20111003
  34. MIRCERA [Suspect]
     Dosage: LAST DOSE PRIOR TO SAE: 14 JANUARY 2011.
     Route: 042
  35. PREDNISONE TAB [Concomitant]
  36. RISEDRONIC ACID [Concomitant]
  37. METOPROLOL SUCCINATE [Concomitant]
  38. RANITIDINE [Concomitant]
     Dates: start: 20111031
  39. CILOSTAZOL [Concomitant]
     Dates: start: 20111031
  40. L-CARNITINE [Concomitant]
     Dates: start: 20100906

REACTIONS (21)
  - CEREBRAL ISCHAEMIA [None]
  - DELIRIUM [None]
  - OSTEOPOROSIS [None]
  - FALL [None]
  - MYOCARDIAL INFARCTION [None]
  - ATRIAL FLUTTER [None]
  - HEART RATE INCREASED [None]
  - BRONCHOPNEUMONIA [None]
  - MYOCARDIAL ISCHAEMIA [None]
  - CONFUSIONAL STATE [None]
  - IN-STENT CORONARY ARTERY RESTENOSIS [None]
  - HAEMOGLOBIN DECREASED [None]
  - CEREBRAL ATROPHY [None]
  - HEART VALVE CALCIFICATION [None]
  - CHRONIC MYELOID LEUKAEMIA [None]
  - SPINAL COMPRESSION FRACTURE [None]
  - LETHARGY [None]
  - ATRIAL FIBRILLATION [None]
  - HYPERTENSION [None]
  - ANGINA PECTORIS [None]
  - CEREBROVASCULAR ACCIDENT [None]
